FAERS Safety Report 9321540 (Version 2)
Quarter: 2013Q2

REPORT INFORMATION
  Report Type: Spontaneous
  Country: US (occurrence: US)
  Receive Date: 20130531
  Receipt Date: 20130620
  Transmission Date: 20140414
  Serious: Yes (Other)
  Sender: FDA-Public Use
  Company Number: US-BRISTOL-MYERS SQUIBB COMPANY-18926154

PATIENT
  Age: 68 Year
  Sex: Female
  Weight: 72.56 kg

DRUGS (1)
  1. ORENCIA [Suspect]
     Indication: RHEUMATOID ARTHRITIS
     Dosage: LAST INFUSION :06MAY2013
     Route: 042
     Dates: start: 20130128

REACTIONS (4)
  - Local swelling [Unknown]
  - Eye swelling [Unknown]
  - Lip swelling [Unknown]
  - Pharyngeal oedema [Unknown]
